FAERS Safety Report 19216215 (Version 2)
Quarter: 2021Q2

REPORT INFORMATION
  Report Type: Spontaneous
  Country: CZ (occurrence: CZ)
  Receive Date: 20210505
  Receipt Date: 20210614
  Transmission Date: 20210717
  Serious: Yes (Hospitalization)
  Sender: FDA-Public Use
  Company Number: CZ-ROCHE-2820450

PATIENT
  Age: 80 Year
  Sex: Male

DRUGS (10)
  1. DUODART [Concomitant]
     Active Substance: DUTASTERIDE\TAMSULOSIN
  2. HELICID [Concomitant]
     Active Substance: OMEPRAZOLE
  3. CONCOR [Concomitant]
     Active Substance: BISOPROLOL FUMARATE
  4. VIGANTOL [Concomitant]
  5. ALLOPURINOL. [Concomitant]
     Active Substance: ALLOPURINOL
  6. ADATAM [Concomitant]
  7. TOLURA [Concomitant]
     Active Substance: TELMISARTAN
  8. ATORIS [Concomitant]
     Active Substance: ATORVASTATIN CALCIUM
  9. HEMLIBRA [Suspect]
     Active Substance: EMICIZUMAB-KXWH
     Indication: FACTOR VIII DEFICIENCY
     Route: 058
     Dates: start: 20200826
  10. FURON [Concomitant]
     Active Substance: FUROSEMIDE

REACTIONS (2)
  - COVID-19 [Recovered/Resolved]
  - Incorrect dose administered [Unknown]

NARRATIVE: CASE EVENT DATE: 202104
